FAERS Safety Report 9179193 (Version 1)
Quarter: 2013Q1

REPORT INFORMATION
  Report Type: Spontaneous
  Country: DK (occurrence: DK)
  Receive Date: 20130321
  Receipt Date: 20130321
  Transmission Date: 20140127
  Serious: Yes (Other)
  Sender: FDA-Public Use
  Company Number: DK-GLAXOSMITHKLINE-B0740087A

PATIENT
  Sex: Female

DRUGS (2)
  1. TWINRIX [Suspect]
     Indication: PROPHYLAXIS
     Route: 065
  2. MALARONE [Suspect]
     Indication: PROPHYLAXIS
     Route: 065

REACTIONS (3)
  - Abortion missed [Unknown]
  - Exposure during pregnancy [Unknown]
  - Exposure during pregnancy [Unknown]
